FAERS Safety Report 7099938-9 (Version None)
Quarter: 2010Q4

REPORT INFORMATION
  Report Type: 
  Country: None (occurrence: None)
  Receive Date: 20101112
  Receipt Date: 20101105
  Transmission Date: 20110411
  Serious: Yes (Hospitalization, Other)
  Sender: FDA-Public Use
  Company Number: US-SANOFI-AVENTIS-2010SA068026

PATIENT
  Age: 59 Year
  Sex: Female

DRUGS (3)
  1. LANTUS [Suspect]
     Dosage: DOSE:38 UNIT(S)
     Route: 058
     Dates: start: 20070101, end: 20100101
  2. LANTUS [Suspect]
     Dosage: DOSE:18 UNIT(S)
     Route: 058
     Dates: start: 20100101
  3. SOLOSTAR [Suspect]
     Dates: start: 20070101

REACTIONS (9)
  - BLOOD GLUCOSE FLUCTUATION [None]
  - BLOOD GLUCOSE INCREASED [None]
  - DECREASED APPETITE [None]
  - HAEMOPTYSIS [None]
  - HYPOGLYCAEMIC UNCONSCIOUSNESS [None]
  - INJURY ASSOCIATED WITH DEVICE [None]
  - PNEUMONIA [None]
  - PYREXIA [None]
  - VOMITING [None]
